FAERS Safety Report 9007325 (Version 1)
Quarter: 2013Q1

REPORT INFORMATION
  Report Type: Spontaneous
  Country: US (occurrence: US)
  Receive Date: 20130110
  Receipt Date: 20130110
  Transmission Date: 20140127
  Serious: Yes (Other)
  Sender: FDA-Public Use
  Company Number: CHPA2012US025841

PATIENT
  Age: 68 Year
  Sex: Female

DRUGS (2)
  1. MAALOX UNKNOWN [Suspect]
     Indication: DYSPEPSIA
     Dosage: 1/2 OZ TO 1 OZ AS NEEDED
     Route: 048
  2. DRUG THERAPY NOS [Concomitant]

REACTIONS (2)
  - Arterial occlusive disease [Unknown]
  - Therapeutic response unexpected [Unknown]
